FAERS Safety Report 15756363 (Version 2)
Quarter: 2018Q4

REPORT INFORMATION
  Report Type: Spontaneous
  Country: PL (occurrence: PL)
  Receive Date: 20181224
  Receipt Date: 20181231
  Transmission Date: 20190205
  Serious: Yes (Other)
  Sender: FDA-Public Use
  Company Number: PL-PFIZER INC-2018519766

PATIENT
  Age: 52 Year
  Sex: Male

DRUGS (15)
  1. LIDOCAINE. [Suspect]
     Active Substance: LIDOCAINE
     Indication: LOCAL ANAESTHESIA
  2. EFFENTORA [Suspect]
     Active Substance: FENTANYL CITRATE
     Indication: PAIN
     Dosage: 400 UG, 2X/DAY
     Route: 002
  3. SODIUM PHOSPHATE [Suspect]
     Active Substance: SODIUM PHOSPHATE
     Indication: CONSTIPATION PROPHYLAXIS
  4. BETAMETHASONE. [Suspect]
     Active Substance: BETAMETHASONE
     Indication: LOCAL ANAESTHESIA
     Dosage: UNK
  5. BETAMETHASONE. [Suspect]
     Active Substance: BETAMETHASONE
     Dosage: UNK
  6. MORPHINE [Suspect]
     Active Substance: MORPHINE
     Indication: BONE PAIN
     Dosage: UNK
     Route: 042
  7. ZOLEDRONIC ACID [Suspect]
     Active Substance: ZOLEDRONIC ACID
     Indication: METASTASES TO BONE
     Dosage: 4 MG, UNK
     Route: 042
  8. TRAZODONE [Suspect]
     Active Substance: TRAZODONE HYDROCHLORIDE
     Indication: ANXIETY DISORDER
     Dosage: UNK
  9. ALPRAZOLAM. [Suspect]
     Active Substance: ALPRAZOLAM
     Indication: ANXIETY DISORDER
     Dosage: UNK
  10. ESCITALOPRAM [Suspect]
     Active Substance: ESCITALOPRAM OXALATE
     Indication: ANXIETY DISORDER
     Dosage: UNK
  11. GABAPENTIN. [Suspect]
     Active Substance: GABAPENTIN
     Indication: NEURALGIA
     Dosage: DOSAGE BEING SET AT 300-600-600 MG/DAY
  12. HEPARIN [Suspect]
     Active Substance: HEPARIN SODIUM
     Indication: THROMBOSIS PROPHYLAXIS
     Dosage: UNK
  13. MORPHINE [Suspect]
     Active Substance: MORPHINE
     Dosage: 60 MG + 10 MG EVERY 12 HOURS
     Route: 058
  14. VALPROIC ACID. [Suspect]
     Active Substance: VALPROIC ACID
     Indication: NEURALGIA
     Dosage: 400 MG, DILUTED, WAS ADMINISTERED BY INFUSION OVER THREE CONSECUTIVE DAYS
     Route: 017
  15. MORPHINE [Suspect]
     Active Substance: MORPHINE
     Dosage: 60 MG + 10 MG EVERY 12 HOURS
     Route: 048

REACTIONS (1)
  - Pneumonia [Recovering/Resolving]
